FAERS Safety Report 16712750 (Version 1)
Quarter: 2019Q3

REPORT INFORMATION
  Report Type: Spontaneous
  Country: FR (occurrence: FR)
  Receive Date: 20190817
  Receipt Date: 20190817
  Transmission Date: 20191004
  Serious: Yes (Other)
  Sender: FDA-Public Use
  Company Number: FR-BRISTOL-MYERS SQUIBB COMPANY-BMS-2019-077865

PATIENT
  Age: 77 Year
  Sex: Male
  Weight: 64.5 kg

DRUGS (1)
  1. OPDIVO [Suspect]
     Active Substance: NIVOLUMAB
     Indication: RENAL CANCER
     Dosage: 3 MILLIGRAM/KILOGRAM
     Route: 042
     Dates: start: 20181115

REACTIONS (3)
  - Autoimmune anaemia [Recovered/Resolved]
  - Arthralgia [Recovering/Resolving]
  - Myalgia [Recovering/Resolving]

NARRATIVE: CASE EVENT DATE: 201904
